FAERS Safety Report 9019636 (Version 2)
Quarter: 2013Q2

REPORT INFORMATION
  Report Type: Report from Study
  Country: GB (occurrence: GB)
  Receive Date: 20130118
  Receipt Date: 20130401
  Transmission Date: 20140414
  Serious: No
  Sender: FDA-Public Use
  Company Number: GB-ROCHE-1180418

PATIENT
  Sex: Male
  Weight: 105.3 kg

DRUGS (3)
  1. RANIBIZUMAB [Suspect]
     Indication: DIABETIC RETINAL OEDEMA
     Dosage: DATE OF LAST DOSE OF RANIBIZUMAB 21/SEP/2012
     Route: 050
     Dates: start: 20120513
  2. RANIBIZUMAB [Suspect]
     Route: 050
     Dates: start: 20130128
  3. RANIBIZUMAB [Suspect]
     Route: 050
     Dates: start: 20130225

REACTIONS (1)
  - Visual acuity reduced [Recovering/Resolving]
